FAERS Safety Report 16257656 (Version 4)
Quarter: 2020Q4

REPORT INFORMATION
  Report Type: Spontaneous
  Country: US (occurrence: US)
  Receive Date: 20190430
  Receipt Date: 20201124
  Transmission Date: 20210113
  Serious: Yes (Other)
  Sender: FDA-Public Use
  Company Number: US-JNJFOC-20190440806

PATIENT
  Age: 67 Year
  Sex: Female
  Weight: 49.94 kg

DRUGS (3)
  1. ATENOLOL. [Concomitant]
     Active Substance: ATENOLOL
     Indication: BLOOD PRESSURE MEASUREMENT
     Route: 048
  2. REMICADE [Suspect]
     Active Substance: INFLIXIMAB
     Indication: CROHN^S DISEASE
     Route: 042
     Dates: start: 199911
  3. BUMEX [Concomitant]
     Active Substance: BUMETANIDE
     Route: 048

REACTIONS (4)
  - Myocardial infarction [Recovered/Resolved]
  - Hip arthroplasty [Recovered/Resolved]
  - Bone disorder [Unknown]
  - Lipids increased [Not Recovered/Not Resolved]

NARRATIVE: CASE EVENT DATE: 1999
